FAERS Safety Report 8664277 (Version 2)
Quarter: 2013Q1

REPORT INFORMATION
  Report Type: Spontaneous
  Country: BR (occurrence: None)
  Receive Date: 20120627
  Receipt Date: 20121113
  Transmission Date: 20140127
  Serious: Yes (Hospitalization)
  Sender: FDA-Public Use
  Company Number: DSJ-2012-10938

PATIENT
  Sex: Female

DRUGS (9)
  1. BENICAR HCT [Suspect]
     Indication: HYPERTENSION
     Dosage: 40/25 MG (1 IN 1 D),PER ORAL
     Route: 048
  2. BENICAR [Suspect]
     Indication: HYPERTENSION
     Dosage: 40 MG (40 MG,1 IN 1 D),PER ORAL
     Route: 048
  3. SPIRONOLACTONE [Suspect]
     Indication: HYPERTENSION
     Dosage: 25 MG,PER ORAL
     Route: 048
     Dates: start: 20120604
  4. AMLODIPINE [Concomitant]
  5. METFORMIN HYDROCHLORIDE [Concomitant]
  6. OMEPRAZOLE [Concomitant]
  7. LEVOTHYROXINE SODIUM [Concomitant]
  8. SERTRALINE HYDROCHLORIDE [Concomitant]
  9. ASPIRIN [Concomitant]

REACTIONS (4)
  - Hypertension [None]
  - Weight decreased [None]
  - Knee arthroplasty [None]
  - Overdose [None]
